FAERS Safety Report 8228312-4 (Version None)
Quarter: 2012Q1

REPORT INFORMATION
  Report Type: 
  Country: None (occurrence: None)
  Receive Date: 20120322
  Receipt Date: 20120313
  Transmission Date: 20120608
  Serious: Yes (Other)
  Sender: FDA-Public Use
  Company Number: BR-JNJFOC-20120307974

PATIENT
  Age: 42 Year
  Sex: Female
  Weight: 77 kg

DRUGS (5)
  1. REMICADE [Suspect]
     Route: 042
     Dates: start: 20120202
  2. PREDNISONE TAB [Concomitant]
     Indication: RHEUMATOID ARTHRITIS
     Route: 065
  3. METHOTREXATE [Concomitant]
     Indication: RHEUMATOID ARTHRITIS
     Route: 065
  4. INH [Concomitant]
     Indication: PROPHYLAXIS
     Route: 065
  5. REMICADE [Suspect]
     Indication: RHEUMATOID ARTHRITIS
     Route: 042
     Dates: start: 20120301

REACTIONS (7)
  - ALOPECIA [None]
  - SOMNOLENCE [None]
  - NAUSEA [None]
  - HYPOAESTHESIA [None]
  - WEIGHT DECREASED [None]
  - INFLUENZA [None]
  - DECREASED APPETITE [None]
